FAERS Safety Report 15590792 (Version 7)
Quarter: 2020Q2

REPORT INFORMATION
  Report Type: Spontaneous
  Country: US (occurrence: US)
  Receive Date: 20181106
  Receipt Date: 20200528
  Transmission Date: 20200713
  Serious: Yes (Congenital Anomaly, Other)
  Sender: FDA-Public Use
  Company Number: PHEH2018US046770

PATIENT
  Sex: Female

DRUGS (3)
  1. ONDANSETRON. [Suspect]
     Active Substance: ONDANSETRON
     Indication: PRODUCT USED FOR UNKNOWN INDICATION
     Dosage: MOTHER^S DOSE: 04 MG, Q6H, PRN
     Route: 064
  2. ZOFRAN ODT [Suspect]
     Active Substance: ONDANSETRON HYDROCHLORIDE
     Indication: FOETAL EXPOSURE DURING PREGNANCY
     Route: 064
  3. ZOFRAN [Suspect]
     Active Substance: ONDANSETRON HYDROCHLORIDE
     Indication: FOETAL EXPOSURE DURING PREGNANCY
     Dosage: MOTHER^S DOSE: 04 MG, Q6H, PRN
     Route: 064

REACTIONS (24)
  - Patent ductus arteriosus [Unknown]
  - Fever neonatal [Unknown]
  - Ear pain [Unknown]
  - Cough [Unknown]
  - Foetal exposure during pregnancy [Unknown]
  - Heart disease congenital [Unknown]
  - Birth mark [Unknown]
  - Pulmonary artery stenosis [Unknown]
  - Rhinorrhoea [Unknown]
  - Ventricular septal defect [Unknown]
  - Transposition of the great vessels [Unknown]
  - Hypermetropia [Unknown]
  - Epidermal naevus [Unknown]
  - Left-to-right cardiac shunt [Unknown]
  - Dysphagia [Unknown]
  - Underweight [Unknown]
  - Strabismus [Unknown]
  - Injury [Unknown]
  - Candida infection [Unknown]
  - Otitis media [Unknown]
  - Atrial septal defect [Unknown]
  - Pulmonary oedema [Unknown]
  - Pulmonary hypertension [Unknown]
  - Conjunctivitis [Unknown]
